FAERS Safety Report 8276557-X (Version None)
Quarter: 2012Q2

REPORT INFORMATION
  Report Type: 
  Country: None (occurrence: None)
  Receive Date: 20120406
  Receipt Date: 20120402
  Transmission Date: 20120825
  Serious: Yes (Death, Life-Threatening, Hospitalization)
  Sender: FDA-Public Use
  Company Number: 2011SP010175

PATIENT
  Age: 31 Year
  Sex: Female

DRUGS (4)
  1. LUCRIN DEPOT (LEUPROLINE ACETATE) [Concomitant]
  2. PREGNYL [Suspect]
     Indication: IN VITRO FERTILISATION
     Dosage: 10000 IU;IM
     Dates: start: 20110207, end: 20110207
  3. PUREGON (FOLLITROPIN BETA /01348901/) [Suspect]
     Indication: IN VITRO FERTILISATION
     Dosage: 150 IU;SC
     Route: 058
     Dates: start: 20110125, end: 20110206
  4. MENOPUR [Concomitant]

REACTIONS (11)
  - OVERDOSE [None]
  - OVARIAN HYPERSTIMULATION SYNDROME [None]
  - FLUID RETENTION [None]
  - SWELLING [None]
  - ISCHAEMIC STROKE [None]
  - PAIN [None]
  - COMA [None]
  - PULMONARY EMBOLISM [None]
  - ABDOMINAL DISTENSION [None]
  - DIZZINESS [None]
  - MALAISE [None]
